FAERS Safety Report 10012201 (Version 1)
Quarter: 2014Q1

REPORT INFORMATION
  Report Type: Spontaneous
  Country: DE (occurrence: DE)
  Receive Date: 20140314
  Receipt Date: 20140314
  Transmission Date: 20141002
  Serious: Yes (Other)
  Sender: FDA-Public Use
  Company Number: DE-GLAXOSMITHKLINE-D0082409A

PATIENT
  Age: 52 Year
  Sex: Female

DRUGS (2)
  1. NARAMIG [Suspect]
     Dosage: 2.5MG UNKNOWN
     Route: 048
     Dates: start: 200107, end: 200206
  2. ANAFRANIL [Concomitant]
     Route: 048

REACTIONS (2)
  - Drug dependence [Unknown]
  - Drug abuse [Unknown]
